FAERS Safety Report 23243193 (Version 2)
Quarter: 2024Q1

REPORT INFORMATION
  Report Type: Report from Study
  Country: GB (occurrence: GB)
  Receive Date: 20231130
  Receipt Date: 20240122
  Transmission Date: 20240410
  Serious: Yes (Other)
  Sender: FDA-Public Use
  Company Number: GB-ALXN-A202210485AA

PATIENT
  Age: 74 Year
  Sex: Male

DRUGS (3)
  1. ULTOMIRIS [Suspect]
     Active Substance: RAVULIZUMAB-CWVZ
     Indication: Paroxysmal nocturnal haemoglobinuria
     Dosage: 3000 MG, EVERY EIGHT WEEKS
     Route: 065
     Dates: start: 20220705
  2. ULTOMIRIS [Suspect]
     Active Substance: RAVULIZUMAB-CWVZ
     Dosage: 3300 MG, EVERY EIGHT WEEKS
     Route: 042
  3. EXJADE [Concomitant]
     Active Substance: DEFERASIROX
     Indication: Blood iron increased
     Dosage: 3X360MG,UNK
     Route: 048

REACTIONS (6)
  - Haemoglobin decreased [Unknown]
  - Joint swelling [Unknown]
  - Peripheral swelling [Recovering/Resolving]
  - Dyspnoea [Not Recovered/Not Resolved]
  - Nasopharyngitis [Recovered/Resolved]
  - Fatigue [Unknown]

NARRATIVE: CASE EVENT DATE: 20220718
